FAERS Safety Report 16206320 (Version 1)
Quarter: 2019Q2

REPORT INFORMATION
  Report Type: Spontaneous
  Country: US (occurrence: US)
  Receive Date: 20190313
  Receipt Date: 20190313
  Transmission Date: 20190711
  Serious: Yes (Hospitalization)
  Sender: FDA-Public Use
  Company Number: None

PATIENT
  Age: 63 Year
  Sex: Female
  Weight: 68.6 kg

DRUGS (1)
  1. DOXIL [Suspect]
     Active Substance: DOXORUBICIN HYDROCHLORIDE
     Dates: end: 20190219

REACTIONS (6)
  - Dehydration [None]
  - Nausea [None]
  - Vomiting [None]
  - Fatigue [None]
  - Acute kidney injury [None]
  - Enteritis [None]

NARRATIVE: CASE EVENT DATE: 20190304
